FAERS Safety Report 20721397 (Version 1)
Quarter: 2022Q2

REPORT INFORMATION
  Report Type: Spontaneous
  Country: US (occurrence: None)
  Receive Date: 20220418
  Receipt Date: 20220418
  Transmission Date: 20220720
  Serious: Yes (Hospitalization)
  Sender: FDA-Public Use
  Company Number: None

PATIENT
  Age: 84 Year
  Sex: Male
  Weight: 91.17 kg

DRUGS (8)
  1. ABIRATERONE [Suspect]
     Active Substance: ABIRATERONE
     Indication: Prostate cancer
     Dosage: FREQUENCY : DAILY;?
     Route: 048
  2. ABIRATERONE [Concomitant]
     Active Substance: ABIRATERONE
  3. BACLOFEN [Concomitant]
     Active Substance: BACLOFEN
  4. ELIGARD [Concomitant]
     Active Substance: LEUPROLIDE ACETATE
  5. NUYLYTELY [Concomitant]
  6. SULFASALAZINE [Concomitant]
     Active Substance: SULFASALAZINE
  7. TAMSULOSIN [Concomitant]
     Active Substance: TAMSULOSIN
  8. TEMAZEPAM [Concomitant]
     Active Substance: TEMAZEPAM

REACTIONS (1)
  - Ulcer [None]
